FAERS Safety Report 18088523 (Version 1)
Quarter: 2020Q3

REPORT INFORMATION
  Report Type: Spontaneous
  Country: US (occurrence: US)
  Receive Date: 20200729
  Receipt Date: 20200729
  Transmission Date: 20201103
  Serious: No
  Sender: FDA-Public Use
  Company Number: US-PUMA BIOTECHNOLOGY, LTD.-2020US002636

PATIENT

DRUGS (2)
  1. NERLYNX [Suspect]
     Active Substance: NERATINIB
     Indication: BREAST CANCER METASTATIC
     Dosage: 160 MG (4 TABLETS), DAILY
     Route: 048
     Dates: start: 202004
  2. LETROZOLE. [Concomitant]
     Active Substance: LETROZOLE
     Indication: BREAST CANCER METASTATIC
     Dosage: UNK
     Dates: start: 202004

REACTIONS (11)
  - Depressed mood [Unknown]
  - Insomnia [Unknown]
  - Underdose [Unknown]
  - Taste disorder [Unknown]
  - Diarrhoea [Unknown]
  - Decreased appetite [Unknown]
  - Gastric dilatation [Unknown]
  - Rash [Unknown]
  - Skin erosion [Unknown]
  - Abdominal pain [Unknown]
  - Fatigue [Unknown]

NARRATIVE: CASE EVENT DATE: 2020
